FAERS Safety Report 23388284 (Version 2)
Quarter: 2024Q3

REPORT INFORMATION
  Report Type: Spontaneous
  Country: BR (occurrence: BR)
  Receive Date: 20240110
  Receipt Date: 20240912
  Transmission Date: 20241016
  Serious: Yes (Other)
  Sender: TEVA
  Company Number: BR-TEVA-VS-3139670

PATIENT
  Age: 77 Year
  Sex: Male

DRUGS (1)
  1. AZILECT [Suspect]
     Active Substance: RASAGILINE MESYLATE
     Indication: Product used for unknown indication
     Dosage: FOR APPROXIMATELY 7 YEARS
     Route: 065
     Dates: end: 2024

REACTIONS (4)
  - Myocardial infarction [Recovered/Resolved]
  - Drug effect less than expected [Unknown]
  - Osteoarthritis [Not Recovered/Not Resolved]
  - COVID-19 [Unknown]
